FAERS Safety Report 13019662 (Version 1)
Quarter: 2016Q4

REPORT INFORMATION
  Report Type: Spontaneous
  Country: US (occurrence: US)
  Receive Date: 20161212
  Receipt Date: 20161212
  Transmission Date: 20170207
  Serious: No
  Sender: FDA-Public Use
  Company Number: US-ROCHE-1782318

PATIENT
  Age: 51 Year
  Sex: Female

DRUGS (1)
  1. ACTEMRA [Suspect]
     Active Substance: TOCILIZUMAB
     Indication: ARTHRITIS
     Route: 058
     Dates: start: 20150101

REACTIONS (2)
  - Injection site bruising [Unknown]
  - Oedema [Unknown]

NARRATIVE: CASE EVENT DATE: 20160601
